FAERS Safety Report 7831819-2 (Version None)
Quarter: 2011Q4

REPORT INFORMATION
  Report Type: 
  Country: None (occurrence: None)
  Receive Date: 20111021
  Receipt Date: 20111010
  Transmission Date: 20120403
  Serious: Yes (Other)
  Sender: FDA-Public Use
  Company Number: US-ELI_LILLY_AND_COMPANY-US201110003427

PATIENT
  Sex: Female

DRUGS (4)
  1. HUMALOG MIX 75/25 [Suspect]
     Dosage: 45 U, EACH EVENING
  2. HUMALOG MIX 75/25 [Suspect]
     Indication: DIABETES MELLITUS
     Dosage: 35 U, EACH MORNING
  3. HUMALOG MIX 75/25 [Suspect]
     Dosage: 35 U, EACH MORNING
  4. HUMALOG MIX 75/25 [Suspect]
     Dosage: 45 U, EACH EVENING

REACTIONS (5)
  - VISION BLURRED [None]
  - DIZZINESS [None]
  - FATIGUE [None]
  - BLINDNESS [None]
  - HYPERHIDROSIS [None]
